FAERS Safety Report 9269949 (Version 1)
Quarter: 2013Q2

REPORT INFORMATION
  Report Type: Spontaneous
  Country: US (occurrence: US)
  Receive Date: 20130503
  Receipt Date: 20130503
  Transmission Date: 20140414
  Serious: Yes (Other)
  Sender: FDA-Public Use
  Company Number: US-TEVA-402204USA

PATIENT
  Age: 54 Year
  Sex: 0

DRUGS (2)
  1. ATENOLOL [Suspect]
     Route: 065
  2. BUPROPION [Suspect]
     Route: 065

REACTIONS (3)
  - Stevens-Johnson syndrome [Unknown]
  - Toxic epidermal necrolysis [Unknown]
  - Blindness [Unknown]
